FAERS Safety Report 20370118 (Version 2)
Quarter: 2022Q1

REPORT INFORMATION
  Report Type: Other
  Country: JP (occurrence: None)
  Receive Date: 20220124
  Receipt Date: 20220129
  Transmission Date: 20220423
  Serious: Yes (Hospitalization)
  Sender: FDA-Public Use
  Company Number: JP-ROCHE-3006777

PATIENT
  Age: 5 Decade
  Sex: Female

DRUGS (3)
  1. RITUXAN [Suspect]
     Active Substance: RITUXIMAB
     Indication: Cryoglobulinaemia
     Route: 041
  2. PREDNISOLONE [Concomitant]
     Active Substance: PREDNISOLONE
     Indication: Cryoglobulinaemia
  3. URSO [Concomitant]
     Active Substance: URSODIOL
     Indication: Chronic hepatitis C

REACTIONS (3)
  - Pneumonia [Recovering/Resolving]
  - SARS-CoV-2 test positive [Recovering/Resolving]
  - Off label use [Unknown]
